FAERS Safety Report 10193505 (Version 1)
Quarter: 2014Q2

REPORT INFORMATION
  Report Type: Spontaneous
  Country: US (occurrence: US)
  Receive Date: 20140524
  Receipt Date: 20140524
  Transmission Date: 20141212
  Serious: No
  Sender: FDA-Public Use
  Company Number: US-SA-2013SA123543

PATIENT
  Age: 69 Year
  Sex: Male

DRUGS (2)
  1. LANTUS SOLOSTAR [Suspect]
     Indication: TYPE 2 DIABETES MELLITUS
     Dosage: TAKEN FROM: 1 WEEK AGO. DOSE:30 UNIT(S)
     Route: 051
  2. SOLOSTAR [Concomitant]

REACTIONS (5)
  - Hyperhidrosis [Unknown]
  - Anxiety [Unknown]
  - Disorientation [Unknown]
  - Blood glucose decreased [Unknown]
  - Drug dose omission [Unknown]
